FAERS Safety Report 16941054 (Version 1)
Quarter: 2019Q4

REPORT INFORMATION
  Report Type: Spontaneous
  Country: US (occurrence: US)
  Receive Date: 20191019
  Receipt Date: 20191019
  Transmission Date: 20200122
  Serious: Yes (Disabling)
  Sender: FDA-Public Use
  Company Number: None

PATIENT
  Age: 64 Year
  Sex: Female
  Weight: 66.6 kg

DRUGS (6)
  1. VITAMIN D3 [Concomitant]
     Active Substance: CHOLECALCIFEROL
  2. HYDROCHLOROTHIAZIDE. [Concomitant]
     Active Substance: HYDROCHLOROTHIAZIDE
  3. CALCIUM [Concomitant]
     Active Substance: CALCIUM
  4. RAMIPRIL. [Concomitant]
     Active Substance: RAMIPRIL
  5. LETROZOLE. [Suspect]
     Active Substance: LETROZOLE
     Indication: BREAST CANCER
     Dosage: ?          QUANTITY:1 TABLET(S);?
     Route: 048
     Dates: start: 20170331, end: 20191019
  6. MONTELUKAST [Concomitant]
     Active Substance: MONTELUKAST SODIUM

REACTIONS (6)
  - Loss of personal independence in daily activities [None]
  - Affect lability [None]
  - Disturbance in attention [None]
  - Stomatitis [None]
  - Impaired work ability [None]
  - Muscle spasms [None]

NARRATIVE: CASE EVENT DATE: 20190301
